FAERS Safety Report 10007420 (Version 1)
Quarter: 2014Q1

REPORT INFORMATION
  Report Type: Spontaneous
  Country: US (occurrence: US)
  Receive Date: 20140313
  Receipt Date: 20140313
  Transmission Date: 20141002
  Serious: Yes (Death)
  Sender: FDA-Public Use
  Company Number: US-TEVA-467636USA

PATIENT
  Sex: Female
  Weight: 68.55 kg

DRUGS (2)
  1. FENTANYL [Suspect]
     Indication: BREAKTHROUGH PAIN
     Dosage: 800
  2. ROXICODONE [Concomitant]
     Indication: PAIN
     Dosage: 120 MILLIGRAM DAILY;
     Route: 048

REACTIONS (1)
  - Neoplasm malignant [Fatal]
